FAERS Safety Report 11294522 (Version 1)
Quarter: 2015Q3

REPORT INFORMATION
  Report Type: Spontaneous
  Country: US (occurrence: None)
  Receive Date: 20150722
  Receipt Date: 20150722
  Transmission Date: 20151125
  Serious: No
  Sender: FDA-Public Use
  Company Number: None

PATIENT
  Age: 52 Year
  Sex: Female

DRUGS (7)
  1. LEVOTHYROXINE (LEVOTHROID/SYNTHROID) [Concomitant]
  2. ERGOCALCIFEROL. [Concomitant]
     Active Substance: ERGOCALCIFEROL
  3. VIT D2 (DRISDOL) [Concomitant]
  4. AMPYRA [Suspect]
     Active Substance: DALFAMPRIDINE
     Indication: MULTIPLE SCLEROSIS
     Route: 048
     Dates: start: 201007
  5. INTERFERON BETA-1B (EXTAVIA) [Concomitant]
  6. LISINOPRIL-HYDROCHLOROTHIAZIDE (PRINZIDE/ZESTORETIC) [Concomitant]
  7. FLUOCINONIDE (LIDEX) [Concomitant]

REACTIONS (5)
  - Haematocrit abnormal [None]
  - Haemoglobin abnormal [None]
  - White blood cell count abnormal [None]
  - Red blood cell count abnormal [None]
  - Blood thyroid stimulating hormone decreased [None]

NARRATIVE: CASE EVENT DATE: 20150706
